FAERS Safety Report 20911331 (Version 1)
Quarter: 2022Q2

REPORT INFORMATION
  Report Type: Report from Study
  Country: CN (occurrence: CN)
  Receive Date: 20220603
  Receipt Date: 20220603
  Transmission Date: 20220721
  Serious: Yes (Other)
  Sender: FDA-Public Use
  Company Number: CN-TAKEDA-2022TUS036100

PATIENT
  Age: 13 Year
  Sex: Male

DRUGS (3)
  1. ADVATE [Suspect]
     Active Substance: ANTIHEMOPHILIC FACTOR, HUMAN RECOMBINANT
     Indication: Factor VIII deficiency
     Dosage: 500 INTERNATIONAL UNIT, Q2WEEKS
     Route: 042
     Dates: start: 2020
  2. ADVATE [Suspect]
     Active Substance: ANTIHEMOPHILIC FACTOR, HUMAN RECOMBINANT
     Indication: Factor VIII deficiency
     Dosage: 500 INTERNATIONAL UNIT, Q2WEEKS
     Route: 042
     Dates: start: 2020
  3. ADVATE [Suspect]
     Active Substance: ANTIHEMOPHILIC FACTOR, HUMAN RECOMBINANT
     Indication: Factor VIII deficiency
     Dosage: 500 INTERNATIONAL UNIT, Q2WEEKS
     Route: 042
     Dates: start: 2020

REACTIONS (3)
  - Haemorrhage subcutaneous [Recovering/Resolving]
  - Lividity [Recovering/Resolving]
  - Fall [Recovering/Resolving]

NARRATIVE: CASE EVENT DATE: 20220529
